FAERS Safety Report 6054398-1 (Version None)
Quarter: 2009Q1

REPORT INFORMATION
  Report Type: 
  Country: None (occurrence: None)
  Receive Date: 20090127
  Receipt Date: 20090119
  Transmission Date: 20090719
  Serious: Yes (Hospitalization, Other)
  Sender: FDA-Public Use
  Company Number: PHHY2009CA02204

PATIENT
  Sex: Female

DRUGS (1)
  1. DIOVAN [Suspect]
     Dosage: 1 TABLET PER DAY
     Route: 048
     Dates: start: 20081022

REACTIONS (2)
  - HYPOTENSION [None]
  - HYSTERECTOMY [None]
